FAERS Safety Report 15290181 (Version 4)
Quarter: 2019Q3

REPORT INFORMATION
  Report Type: Report from Study
  Country: CZ (occurrence: CZ)
  Receive Date: 20180817
  Receipt Date: 20190912
  Transmission Date: 20191004
  Serious: Yes (Hospitalization)
  Sender: FDA-Public Use
  Company Number: CZ-ROCHE-2170087

PATIENT
  Age: 53 Year
  Sex: Male
  Weight: 113 kg

DRUGS (10)
  1. ALGIFEN NEO [Concomitant]
     Indication: ARTHRALGIA
     Route: 065
     Dates: start: 20180719
  2. TRAMAL [Concomitant]
     Active Substance: TRAMADOL
     Indication: PAIN IN EXTREMITY
  3. TRAMAL [Concomitant]
     Active Substance: TRAMADOL
     Indication: ARTHRALGIA
     Route: 065
     Dates: start: 20180815, end: 20190102
  4. ALGIFEN NEO [Concomitant]
     Indication: PAIN IN EXTREMITY
  5. HYDROCORTISON [HYDROCORTISONE] [Concomitant]
     Indication: RASH
     Route: 042
     Dates: start: 20180727, end: 20180727
  6. BEVACIZUMAB. [Suspect]
     Active Substance: BEVACIZUMAB
     Indication: HEPATOCELLULAR CARCINOMA
     Dosage: DATE OF MOST RECENT DOSE, 1695 MG OF BEVACIZUMAB PRIOR TO SERIOUS ADVERSE EVENT (SAE) ONSET: 06/AUG/
     Route: 042
     Dates: start: 20180806
  7. BISOPROLOL [Concomitant]
     Active Substance: BISOPROLOL
     Indication: HYPERTENSION
     Route: 065
     Dates: start: 2008
  8. ZOLPIDEM [Concomitant]
     Active Substance: ZOLPIDEM TARTRATE
     Indication: INSOMNIA
     Route: 065
     Dates: start: 20180726
  9. ATEZOLIZUMAB. [Suspect]
     Active Substance: ATEZOLIZUMAB
     Indication: HEPATOCELLULAR CARCINOMA
     Dosage: DATE OF MOST RECENT DOSE, 1200 MG OF ATEZOLIZUMAB PRIOR TO SERIOUS ADVERSE EVENT (SAE) ONSET: 06/AUG
     Route: 042
     Dates: start: 20180806
  10. TRIPLIXAM [Concomitant]
     Active Substance: AMLODIPINE BESYLATE\INDAPAMIDE\PERINDOPRIL ARGININE
     Indication: HYPERTENSION
     Route: 065
     Dates: start: 2008

REACTIONS (1)
  - Hepatic pain [Recovered/Resolved]

NARRATIVE: CASE EVENT DATE: 20180812
